FAERS Safety Report 7246245-7 (Version None)
Quarter: 2011Q1

REPORT INFORMATION
  Report Type: 
  Country: None (occurrence: None)
  Receive Date: 20110126
  Receipt Date: 20110120
  Transmission Date: 20110831
  Serious: Yes (Life-Threatening, Hospitalization, Other)
  Sender: FDA-Public Use
  Company Number: US-PFIZER INC-US-WYE-H12642109

PATIENT
  Weight: 86.2 kg

DRUGS (5)
  1. GEODON [Suspect]
     Indication: PARANOIA
     Dosage: 40MG/MORNING; 80MG/NIGHT
     Route: 065
     Dates: start: 20090101, end: 20090101
  2. GEODON [Suspect]
     Indication: SCHIZOAFFECTIVE DISORDER
     Dosage: 80 MG, 1X/DAY (WITH INTENTION TO INCREASE IT WITH TIME)
     Dates: start: 20091111
  3. LORAZEPAM [Concomitant]
     Dosage: 0.5 MG, 3X/DAY
     Route: 065
  4. EFFEXOR XR [Suspect]
     Indication: MAJOR DEPRESSION
     Dosage: 150 MG, 1X/DAY
     Route: 048
     Dates: end: 20091101
  5. EFFEXOR XR [Suspect]
     Indication: SCHIZOAFFECTIVE DISORDER
     Dosage: 225 MG, 1X/DAY
     Route: 048
     Dates: start: 20091101

REACTIONS (7)
  - CONDITION AGGRAVATED [None]
  - SUICIDAL BEHAVIOUR [None]
  - POISONING DELIBERATE [None]
  - MENTAL DISORDER [None]
  - SUICIDE ATTEMPT [None]
  - PARANOIA [None]
  - LIVER FUNCTION TEST ABNORMAL [None]
